FAERS Safety Report 4305292-5 (Version None)
Quarter: 2004Q1

REPORT INFORMATION
  Report Type: 
  Country: None (occurrence: None)
  Receive Date: 20040226
  Receipt Date: 20030228
  Transmission Date: 20041129
  Serious: No
  Sender: FDA-Public Use
  Company Number: US-BRISTOL-MYERS SQUIBB COMPANY-12198180

PATIENT
  Age: 61 Year
  Sex: Female

DRUGS (7)
  1. PACLITAXEL [Suspect]
     Indication: NON-SMALL CELL LUNG CANCER
     Route: 042
     Dates: start: 20030201, end: 20030201
  2. DECADRON [Concomitant]
     Indication: PREMEDICATION
  3. BENADRYL [Concomitant]
     Indication: PREMEDICATION
  4. NORVASC [Concomitant]
  5. WELLBUTRIN [Concomitant]
  6. CARBOPLATIN [Concomitant]
  7. CPT-11 [Concomitant]

REACTIONS (4)
  - BURNING SENSATION [None]
  - ERYTHEMA [None]
  - INJECTION SITE PAIN [None]
  - OEDEMA PERIPHERAL [None]
